FAERS Safety Report 24035822 (Version 1)
Quarter: 2024Q2

REPORT INFORMATION
  Report Type: Spontaneous
  Country: US (occurrence: None)
  Receive Date: 20240629
  Receipt Date: 20240629
  Transmission Date: 20240716
  Serious: No
  Sender: FDA-Public Use
  Company Number: None

PATIENT
  Age: 68 Year
  Sex: Female
  Weight: 78.3 kg

DRUGS (5)
  1. BROAD SPECTRUM SUNSCREEN SPF 30 [Suspect]
     Active Substance: TITANIUM DIOXIDE
     Indication: Skin cancer
     Dates: start: 20240625, end: 20240625
  2. Metoprolol tartrat [Concomitant]
  3. ROSUVASTATIN [Concomitant]
     Active Substance: ROSUVASTATIN
  4. MAGNESIUM [Concomitant]
     Active Substance: MAGNESIUM
  5. CALCIUM [Concomitant]
     Active Substance: CALCIUM

REACTIONS (6)
  - Rash [None]
  - Rash [None]
  - Swelling [None]
  - Pruritus [None]
  - Burning sensation [None]
  - Application site reaction [None]

NARRATIVE: CASE EVENT DATE: 20240625
